FAERS Safety Report 19742209 (Version 8)
Quarter: 2022Q1

REPORT INFORMATION
  Report Type: Spontaneous
  Country: US (occurrence: US)
  Receive Date: 20210825
  Receipt Date: 20220131
  Transmission Date: 20220423
  Serious: No
  Sender: FDA-Public Use
  Company Number: US-GSKCCFUS-CASE-01144315_AE-67325

PATIENT
  Sex: Female

DRUGS (3)
  1. BENLYSTA [Suspect]
     Active Substance: BELIMUMAB
     Indication: Systemic lupus erythematosus
     Dosage: 200 MG/ML, WE
     Route: 058
  2. BENLYSTA [Suspect]
     Active Substance: BELIMUMAB
     Indication: Systemic lupus erythematosus
     Dosage: UNK
     Route: 055
  3. BENLYSTA [Suspect]
     Active Substance: BELIMUMAB

REACTIONS (5)
  - Injection site haemorrhage [Unknown]
  - Injection site pain [Unknown]
  - Wrong technique in device usage process [Unknown]
  - Product dose omission issue [Unknown]
  - Product complaint [Unknown]
